FAERS Safety Report 8619725-7 (Version None)
Quarter: 2012Q3

REPORT INFORMATION
  Report Type: 
  Country: None (occurrence: None)
  Receive Date: 20120824
  Receipt Date: 20120815
  Transmission Date: 20120928
  Serious: No
  Sender: FDA-Public Use
  Company Number: US-B.I. PHARMACEUTICALS,INC./RIDGEFIELD-2012-BP-19544BP

PATIENT
  Sex: Female

DRUGS (3)
  1. SINGULAIR [Concomitant]
     Indication: DYSPNOEA
     Dosage: 10 MG
     Route: 048
  2. FLUTICASONE PROPIONATE [Concomitant]
     Indication: DYSPNOEA
     Route: 055
  3. SPIRIVA [Suspect]
     Indication: CHRONIC OBSTRUCTIVE PULMONARY DISEASE
     Dosage: 18 MCG
     Route: 055

REACTIONS (4)
  - DYSPNOEA [None]
  - PRODUCT QUALITY ISSUE [None]
  - DRUG INEFFECTIVE [None]
  - CHEST DISCOMFORT [None]
